FAERS Safety Report 11048041 (Version 4)
Quarter: 2015Q3

REPORT INFORMATION
  Report Type: Spontaneous
  Country: US (occurrence: US)
  Receive Date: 20150420
  Receipt Date: 20150812
  Transmission Date: 20151125
  Serious: Yes (Hospitalization)
  Sender: FDA-Public Use
  Company Number: US-PFIZER INC-2015130194

PATIENT
  Age: 47 Year
  Sex: Female
  Weight: 91 kg

DRUGS (8)
  1. OXYCONTIN [Suspect]
     Active Substance: OXYCODONE HYDROCHLORIDE
     Dosage: UNK
  2. ZOFRAN [Concomitant]
     Active Substance: ONDANSETRON HYDROCHLORIDE
     Dosage: UNK
  3. PROTONIX [Concomitant]
     Active Substance: PANTOPRAZOLE SODIUM
     Dosage: UNK
  4. COLLOIDAL SILVER [Concomitant]
     Active Substance: SILVER
     Dosage: UNK
  5. STOOL SOFTENER [Concomitant]
     Active Substance: DOCUSATE CALCIUM
     Dosage: UNK
  6. MILK OF MAGNESIA [Concomitant]
     Active Substance: MAGNESIUM HYDROXIDE
     Dosage: UNK
  7. SUTENT [Suspect]
     Active Substance: SUNITINIB MALATE
     Indication: RENAL CANCER METASTATIC
     Dosage: 50 MG, DAILY (28 DAYS ON /14 DAYS OFF)
     Dates: start: 20150321
  8. METAMUCIL [Concomitant]
     Active Substance: PLANTAGO SEED
     Dosage: UNK

REACTIONS (12)
  - Depressed mood [Unknown]
  - Pruritus [Unknown]
  - Yellow skin [Unknown]
  - Feeling cold [Recovered/Resolved]
  - Chills [Unknown]
  - Dyspepsia [Unknown]
  - Constipation [Unknown]
  - Oral pain [Unknown]
  - Hyperhidrosis [Recovered/Resolved]
  - Hypertension [Unknown]
  - Hypothyroidism [Unknown]
  - Nausea [Unknown]
